FAERS Safety Report 13868912 (Version 2)
Quarter: 2017Q4

REPORT INFORMATION
  Report Type: Report from Study
  Country: US (occurrence: US)
  Receive Date: 20170815
  Receipt Date: 20171127
  Transmission Date: 20180320
  Serious: No
  Sender: FDA-Public Use
  Company Number: PHEH2017US025740

PATIENT
  Age: 46 Year
  Sex: Female

DRUGS (1)
  1. COSENTYX [Suspect]
     Active Substance: SECUKINUMAB
     Indication: PRODUCT USED FOR UNKNOWN INDICATION
     Dosage: 300 MG, QMO
     Route: 058
     Dates: start: 20170727

REACTIONS (8)
  - Pain [Unknown]
  - Visual impairment [Unknown]
  - Headache [Not Recovered/Not Resolved]
  - Dry eye [Not Recovered/Not Resolved]
  - Musculoskeletal stiffness [Unknown]
  - Inappropriate schedule of drug administration [Unknown]
  - Tinnitus [Unknown]
  - Pruritus [Unknown]

NARRATIVE: CASE EVENT DATE: 20170727
